FAERS Safety Report 9777662 (Version 2)
Quarter: 2013Q4

REPORT INFORMATION
  Report Type: Spontaneous
  Country: DE (occurrence: DE)
  Receive Date: 20131223
  Receipt Date: 20131223
  Transmission Date: 20140711
  Serious: Yes (Disabling)
  Sender: FDA-Public Use
  Company Number: DE-ASTRAZENECA-2013SE76183

PATIENT
  Age: 47 Year
  Sex: Female

DRUGS (10)
  1. FASLODEX [Suspect]
     Indication: BREAST CANCER METASTATIC
     Route: 030
     Dates: start: 201303, end: 201306
  2. ZOLADEX [Suspect]
     Indication: BREAST CANCER METASTATIC
     Route: 058
     Dates: start: 201211, end: 201306
  3. ZOMETA [Suspect]
     Indication: BREAST CANCER METASTATIC
     Route: 065
     Dates: start: 201211, end: 201303
  4. PACLITAXEL [Suspect]
     Route: 065
     Dates: start: 201306
  5. HERCEPTIN [Suspect]
     Indication: BREAST CANCER METASTATIC
     Route: 065
     Dates: start: 201207
  6. PERTUZUMAB [Suspect]
     Route: 065
     Dates: start: 201306
  7. ABRAXANE [Concomitant]
     Indication: BREAST CANCER METASTATIC
     Dates: start: 201306
  8. PERJETA [Concomitant]
     Indication: BREAST CANCER METASTATIC
     Dates: start: 201306
  9. AROMATASE INHIBITOR [Concomitant]
     Indication: BREAST CANCER METASTATIC
     Dates: start: 201211, end: 201303
  10. DENOSUMAB (XGEVA) [Concomitant]
     Indication: BREAST CANCER METASTATIC
     Dates: start: 201303, end: 201306

REACTIONS (2)
  - Scleroderma [Not Recovered/Not Resolved]
  - Raynaud^s phenomenon [Unknown]
